FAERS Safety Report 9240413 (Version 2)
Quarter: 2013Q2

REPORT INFORMATION
  Report Type: Spontaneous
  Country: US (occurrence: None)
  Receive Date: 20130417
  Receipt Date: 20130507
  Transmission Date: 20140414
  Serious: Yes (Hospitalization)
  Sender: FDA-Public Use
  Company Number: 2013US001450

PATIENT
  Age: 65 Year
  Sex: Male
  Weight: 85 kg

DRUGS (8)
  1. PONATINIB (AP24534) TABLET [Suspect]
     Indication: CHRONIC MYELOID LEUKAEMIA
     Route: 048
     Dates: start: 20100925
  2. DIOVAN (VALSARTAN) [Concomitant]
  3. KLOR-CON (POTASSIUM CHLORIDE) [Concomitant]
  4. CHLORTHALIDONE (CHLORTHALIDONE) [Concomitant]
  5. PROCARDIA (NIFEDIPINE) [Concomitant]
  6. COREG (CARVEDILOL) [Concomitant]
  7. CLOBETASOL (CLOBETASOL) [Concomitant]
  8. CRESTOR (ROSUVASTATIN CALCIUM) [Concomitant]

REACTIONS (4)
  - Therapy cessation [None]
  - Coronary artery bypass [None]
  - Coronary artery disease [None]
  - Myocardial infarction [None]
